FAERS Safety Report 11311318 (Version 1)
Quarter: 2015Q3

REPORT INFORMATION
  Report Type: Spontaneous
  Country: FR (occurrence: None)
  Receive Date: 20150723
  Receipt Date: 20150723
  Transmission Date: 20151125
  Serious: Yes (Hospitalization, Other)
  Sender: FDA-Public Use
  Company Number: ADR-2015-01391

PATIENT
  Age: 45 Year
  Sex: Male

DRUGS (6)
  1. VALPROIC ACID. [Suspect]
     Active Substance: VALPROIC ACID
     Indication: AFFECTIVE DISORDER
     Dosage: 2 GM/DAY, 2.5 GM/DAY
  2. DIAZEPAM. [Suspect]
     Active Substance: DIAZEPAM
  3. BACLOFEN. [Suspect]
     Active Substance: BACLOFEN
     Indication: ALCOHOLISM
  4. QUETIAPINE [Suspect]
     Active Substance: QUETIAPINE
  5. LAMOTRIGINE. [Suspect]
     Active Substance: LAMOTRIGINE
  6. ACAMPROSATE [Suspect]
     Active Substance: ACAMPROSATE

REACTIONS (3)
  - Abnormal behaviour [None]
  - Alcohol poisoning [None]
  - Depression [None]

NARRATIVE: CASE EVENT DATE: 20150707
